FAERS Safety Report 4932713-7 (Version None)
Quarter: 2006Q1

REPORT INFORMATION
  Report Type: 
  Country: None (occurrence: None)
  Receive Date: 20060306
  Receipt Date: 20060302
  Transmission Date: 20060701
  Serious: Yes (Disabling, Other)
  Sender: FDA-Public Use
  Company Number: JP-SP-2006-00514

PATIENT
  Age: 72 Year
  Sex: Female

DRUGS (5)
  1. IMMUCYST [Suspect]
     Indication: BLADDER CANCER
     Route: 043
     Dates: start: 20051220, end: 20060126
  2. IMMUCYST [Suspect]
     Route: 043
     Dates: start: 20051220, end: 20060126
  3. MOSAPRIDE CITRATE [Concomitant]
     Route: 048
  4. FLUVOXAMINE MALEATE [Concomitant]
     Route: 048
  5. ETHYL LOFLAZEPATE [Concomitant]
     Route: 048

REACTIONS (9)
  - BACK PAIN [None]
  - HAEMATURIA [None]
  - PAIN IN EXTREMITY [None]
  - POLLAKIURIA [None]
  - POLYARTHRITIS [None]
  - REITER'S SYNDROME [None]
  - SHOULDER PAIN [None]
  - SPONDYLOLISTHESIS [None]
  - WHITE BLOOD CELLS URINE POSITIVE [None]
